FAERS Safety Report 5842046-2 (Version None)
Quarter: 2008Q3

REPORT INFORMATION
  Report Type: 
  Country: None (occurrence: None)
  Receive Date: 20080731
  Receipt Date: 20080411
  Transmission Date: 20090109
  Serious: No
  Sender: FDA-Public Use
  Company Number: US200803003838

PATIENT
  Age: 62 Year
  Sex: Female

DRUGS (10)
  1. BYETTA [Suspect]
     Indication: TYPE 2 DIABETES MELLITUS
     Dosage: 5 UG, 2/D, SUBCUTANEOUS
     Route: 058
     Dates: start: 20080304
  2. ACTOS [Concomitant]
  3. GLYBURIDE [Concomitant]
  4. METFORMIN HCL [Concomitant]
  5. LOVASTATIN [Concomitant]
  6. CELEXA [Concomitant]
  7. OMEPRAZOLE [Concomitant]
  8. BUSPAR [Concomitant]
  9. FLONASE (FLUTICASONE PROPIONATE) NASAL DROP (NASAL SPRAY TOO) [Concomitant]
  10. LEVOXYL [Concomitant]

REACTIONS (4)
  - CONSTIPATION [None]
  - INJECTION SITE PAIN [None]
  - NAUSEA [None]
  - PAIN IN EXTREMITY [None]
